FAERS Safety Report 7819166-6 (Version None)
Quarter: 2011Q4

REPORT INFORMATION
  Report Type: 
  Country: None (occurrence: None)
  Receive Date: 20111007
  Receipt Date: 20110928
  Transmission Date: 20120403
  Serious: Yes (Other)
  Sender: FDA-Public Use
  Company Number: AECAN201100050

PATIENT
  Age: 57 Year
  Sex: Female

DRUGS (1)
  1. ALBUMIN (HUMAN) [Suspect]
     Indication: PRODUCT USED FOR UNKNOWN INDICATION
     Dosage: IV
     Route: 042
     Dates: start: 20081119

REACTIONS (1)
  - HEPATITIS C [None]
